FAERS Safety Report 14902683 (Version 1)
Quarter: 2018Q2

REPORT INFORMATION
  Report Type: Spontaneous
  Country: US (occurrence: US)
  Receive Date: 20180516
  Receipt Date: 20180516
  Transmission Date: 20180711
  Serious: No
  Sender: FDA-Public Use
  Company Number: US-SA-2017SA088414

PATIENT
  Sex: Male

DRUGS (7)
  1. LEVEMIR [Concomitant]
     Active Substance: INSULIN DETEMIR
  2. LANTUS [Suspect]
     Active Substance: INSULIN GLARGINE
     Indication: DIABETES MELLITUS
     Route: 051
  3. FLEXTOUCH/INSULIN DETEMIR [Concomitant]
  4. FLEXTOUCH/INSULIN DETEMIR [Concomitant]
  5. TOUJEO [Concomitant]
     Active Substance: INSULIN GLARGINE
  6. LEVEMIR [Concomitant]
     Active Substance: INSULIN DETEMIR
     Dosage: DOSE:6 UNIT(S)
  7. SOLOSTAR [Concomitant]
     Active Substance: DEVICE

REACTIONS (1)
  - Glycosylated haemoglobin increased [Unknown]
